FAERS Safety Report 4675564-3 (Version None)
Quarter: 2005Q2

REPORT INFORMATION
  Report Type: 
  Country: None (occurrence: None)
  Receive Date: 20050527
  Receipt Date: 20050413
  Transmission Date: 20051028
  Serious: Yes (Other)
  Sender: FDA-Public Use
  Company Number: US-BRISTOL-MYERS SQUIBB COMPANY-12932042

PATIENT
  Age: 21 Year
  Sex: Male
  Weight: 66 kg

DRUGS (2)
  1. ABILIFY [Suspect]
     Dates: start: 20050407
  2. DEPAKOTE [Concomitant]

REACTIONS (1)
  - PRIAPISM [None]
